FAERS Safety Report 4983781-8 (Version None)
Quarter: 2006Q1

REPORT INFORMATION
  Report Type: 
  Country: None (occurrence: None)
  Receive Date: 20060302
  Receipt Date: 20060120
  Transmission Date: 20060701
  Serious: No
  Sender: FDA-Public Use
  Company Number: PHEH2006US01197

PATIENT
  Age: 22 Year
  Sex: Female
  Weight: 46 kg

DRUGS (2)
  1. EXJADE [Suspect]
     Indication: SICKLE CELL ANAEMIA
     Dosage: 1000, QD, ORAL
     Route: 048
  2. DESFERAL [Suspect]

REACTIONS (2)
  - DIARRHOEA [None]
  - RASH MACULO-PAPULAR [None]
